FAERS Safety Report 4276396-0 (Version None)
Quarter: 2004Q1

REPORT INFORMATION
  Report Type: 
  Country: None (occurrence: None)
  Receive Date: 20040121
  Receipt Date: 20030623
  Transmission Date: 20041129
  Serious: Yes (Hospitalization)
  Sender: FDA-Public Use
  Company Number: PHFR2003GB02530

PATIENT
  Age: 71 Year
  Sex: Female

DRUGS (5)
  1. VALSARTAN [Concomitant]
     Dosage: 40MG/DAY
     Route: 065
  2. THYROXINE [Concomitant]
     Dosage: 150-175UG
     Route: 065
  3. ATORVASTATIN [Concomitant]
     Dosage: 20MG/NOCTE
     Route: 065
  4. LACTULOSE [Concomitant]
     Route: 065
  5. STARLIX [Suspect]
     Indication: DIABETES MELLITUS
     Dosage: 60 MG, TID
     Route: 048
     Dates: start: 20020901, end: 20030603

REACTIONS (6)
  - BRADYCARDIA [None]
  - CARDIAC DISORDER [None]
  - DIABETIC NEPHROPATHY [None]
  - HYPOALBUMINAEMIA [None]
  - HYPOTENSION [None]
  - OEDEMA [None]
